FAERS Safety Report 17462639 (Version 1)
Quarter: 2020Q1

REPORT INFORMATION
  Report Type: Spontaneous
  Country: US (occurrence: US)
  Receive Date: 20200226
  Receipt Date: 20200226
  Transmission Date: 20200409
  Serious: Yes (Hospitalization)
  Sender: FDA-Public Use
  Company Number: None

PATIENT
  Age: 74 Year
  Sex: Female
  Weight: 60.75 kg

DRUGS (4)
  1. ROCEPHIN [Suspect]
     Active Substance: CEFTRIAXONE SODIUM
     Indication: URINARY TRACT INFECTION
     Route: 042
     Dates: start: 20200221, end: 20200224
  2. DIVALPROEX ER [Suspect]
     Active Substance: DIVALPROEX SODIUM
     Indication: SEIZURE
     Route: 048
     Dates: start: 20200222, end: 20200226
  3. ROCEPHIN [Concomitant]
     Active Substance: CEFTRIAXONE SODIUM
     Dates: start: 20200221, end: 20200224
  4. DIVALPROEX ER [Concomitant]
     Active Substance: DIVALPROEX SODIUM
     Dates: start: 20200222, end: 20200226

REACTIONS (2)
  - Platelet count decreased [None]
  - Thrombocytopenia [None]

NARRATIVE: CASE EVENT DATE: 20200222
